FAERS Safety Report 4664193-3 (Version None)
Quarter: 2005Q2

REPORT INFORMATION
  Report Type: 
  Country: None (occurrence: None)
  Receive Date: 20050516
  Receipt Date: 20050516
  Transmission Date: 20051028
  Serious: Yes (Hospitalization)
  Sender: FDA-Public Use
  Company Number: None

PATIENT
  Age: 84 Year
  Sex: Male
  Weight: 79.8331 kg

DRUGS (4)
  1. CLONIDINE [Suspect]
     Dosage: 0.3 MG TID  (DURATION:  SINCE LAST ADJUSTMENT ON DISCHARGE 3/15/05)
  2. METOPROLOL [Suspect]
     Dosage: 50 MG BID  (DURATION: SINCE LAST ADMUSTMENT ON DISCHARGE 3/15/05)
  3. MINOXIDIL [Suspect]
     Dosage: 2.5 MG DAILY  (DURATION: SINCE LAST ADJUSTMENT ON DISCHARGE 3/15/05)
  4. ENALAPRIL [Suspect]
     Dosage: 20 MG  BID  (DURATION: SINCE LAST ADMUSTMENT ON DISCHARGE 3/15/05)

REACTIONS (2)
  - DIZZINESS [None]
  - HYPOTENSION [None]
